FAERS Safety Report 5098015-6 (Version None)
Quarter: 2006Q3

REPORT INFORMATION
  Report Type: 
  Country: None (occurrence: None)
  Receive Date: 20060905
  Receipt Date: 20060905
  Transmission Date: 20061208
  Serious: Yes (Hospitalization)
  Sender: FDA-Public Use
  Company Number: None

PATIENT
  Age: 49 Year
  Sex: Female
  Weight: 119 kg

DRUGS (4)
  1. BACTRIM DS [Suspect]
     Indication: CELLULITIS
     Dosage: 160/800 MG 2 TABLETS TWICE DAILY ORAL
     Route: 048
     Dates: start: 20060725, end: 20060808
  2. METOPROLOL TARTRATE [Concomitant]
  3. ASPIRIN [Concomitant]
  4. PREVACID [Concomitant]

REACTIONS (11)
  - DIARRHOEA [None]
  - HEPATIC ENZYME INCREASED [None]
  - JAUNDICE [None]
  - NAUSEA [None]
  - NEPHRITIS INTERSTITIAL [None]
  - PYREXIA [None]
  - RASH GENERALISED [None]
  - RASH PAPULAR [None]
  - SKIN EXFOLIATION [None]
  - TREATMENT NONCOMPLIANCE [None]
  - VOMITING [None]
